FAERS Safety Report 23580916 (Version 1)
Quarter: 2024Q1

REPORT INFORMATION
  Report Type: Spontaneous
  Country: US (occurrence: US)
  Receive Date: 20240229
  Receipt Date: 20240229
  Transmission Date: 20240410
  Serious: No
  Sender: FDA-Public Use
  Company Number: US-BIOGEN-2024BI01252139

PATIENT
  Age: 69 Year
  Sex: Female

DRUGS (17)
  1. AVONEX PEN [Suspect]
     Active Substance: INTERFERON BETA-1A
     Indication: Multiple sclerosis
     Dosage: INJECT 30 MCG (1 PEN) INTRAMUSCULARLY ONCE WEEKLY. ROTATE INJECTION SITE
     Route: 050
  2. AVONEX PEN [Suspect]
     Active Substance: INTERFERON BETA-1A
  3. AVONEX PEN [Suspect]
     Active Substance: INTERFERON BETA-1A
  4. AVONEX PEN [Suspect]
     Active Substance: INTERFERON BETA-1A
  5. MAGNESIUM [Concomitant]
     Active Substance: MAGNESIUM
     Route: 050
  6. B COMPLEX VITAMIN [Concomitant]
     Route: 050
  7. VITAMIN E [Concomitant]
     Active Substance: .ALPHA.-TOCOPHEROL
     Route: 050
  8. VIACTIV [Concomitant]
     Route: 050
  9. BUPROPION HYDROCHLORIDE [Concomitant]
     Active Substance: BUPROPION HYDROCHLORIDE
     Route: 050
  10. FAMOTIDINE [Concomitant]
     Active Substance: FAMOTIDINE
     Route: 050
  11. MELOXICAM [Concomitant]
     Active Substance: MELOXICAM
     Route: 050
  12. METAMUCIL FIBER [Concomitant]
     Route: 050
  13. APPLE CIDER VINEGAR [Concomitant]
     Active Substance: APPLE CIDER VINEGAR
     Route: 050
  14. TYLENOL [Concomitant]
     Active Substance: ACETAMINOPHEN
     Route: 050
  15. MONTELUKAST SODIUM [Concomitant]
     Active Substance: MONTELUKAST SODIUM
     Route: 050
  16. PANTOPRAZOLE [Concomitant]
     Active Substance: PANTOPRAZOLE
     Route: 050
  17. NIFEDIPINE [Concomitant]
     Active Substance: NIFEDIPINE
     Route: 050

REACTIONS (2)
  - Product dose omission issue [Unknown]
  - Influenza like illness [Unknown]

NARRATIVE: CASE EVENT DATE: 20240201
